FAERS Safety Report 5405279-5 (Version None)
Quarter: 2007Q3

REPORT INFORMATION
  Report Type: 
  Country: None (occurrence: None)
  Receive Date: 20070803
  Receipt Date: 20070727
  Transmission Date: 20080115
  Serious: Yes (Hospitalization)
  Sender: FDA-Public Use
  Company Number: A0667101A

PATIENT
  Age: 47 Year
  Sex: Male

DRUGS (1)
  1. AVANDAMET [Suspect]
     Route: 065
     Dates: start: 20050101, end: 20070712

REACTIONS (6)
  - DYSPNOEA [None]
  - HYPERHIDROSIS [None]
  - MYOCARDIAL INFARCTION [None]
  - NAUSEA [None]
  - NECK PAIN [None]
  - PALPITATIONS [None]
